FAERS Safety Report 9768320 (Version 2)
Quarter: 2013Q4

REPORT INFORMATION
  Report Type: Spontaneous
  Country: IT (occurrence: IT)
  Receive Date: 20131217
  Receipt Date: 20131226
  Transmission Date: 20140711
  Serious: Yes (Death, Hospitalization)
  Sender: FDA-Public Use
  Company Number: PHHY2013IT145159

PATIENT
  Age: 63 Year
  Sex: Male

DRUGS (3)
  1. METFORMIN [Suspect]
     Indication: TYPE 2 DIABETES MELLITUS
  2. NOREPINEPHRINE [Suspect]
     Indication: HYPOTENSION
  3. ACE INHIBITOR NOS [Concomitant]

REACTIONS (13)
  - Haemodynamic instability [Fatal]
  - Hypotension [Fatal]
  - Drug level increased [Unknown]
  - Metabolic acidosis [Unknown]
  - Tachycardia [Unknown]
  - Dyspnoea [Unknown]
  - Diarrhoea [Unknown]
  - Hyperlactacidaemia [Unknown]
  - Hypoglycaemia [Unknown]
  - Blood creatinine increased [Unknown]
  - Blood gases abnormal [Unknown]
  - Toxicity to various agents [Unknown]
  - Drug ineffective [Unknown]
